FAERS Safety Report 5105780-8 (Version None)
Quarter: 2006Q3

REPORT INFORMATION
  Report Type: 
  Country: None (occurrence: None)
  Receive Date: 20060915
  Receipt Date: 20060816
  Transmission Date: 20061208
  Serious: Yes (Hospitalization)
  Sender: FDA-Public Use
  Company Number: CA-ROCHE-459930

PATIENT
  Age: 59 Year
  Sex: Male
  Weight: 74.4 kg

DRUGS (17)
  1. PEGASYS [Suspect]
     Indication: HEPATITIS C
     Dosage: FORM REPORTED AS PFS. DOSAGE REGIMEN REPORTED AS 1X WK.
     Route: 058
     Dates: start: 20050913, end: 20060814
  2. COPEGUS [Suspect]
     Indication: HEPATITIS C
     Dosage: DOSAGE REGIMEN REPORTED AS 1 X OD.
     Route: 048
     Dates: start: 20050913, end: 20060821
  3. OMEPRAZOLE [Concomitant]
  4. CREAM NOS [Concomitant]
  5. LIOTHYRONINE [Concomitant]
  6. MAXERAN [Concomitant]
  7. CYCLOBENZAPRINE HCL [Concomitant]
  8. VENTOLIN [Concomitant]
  9. FLOVENT [Concomitant]
  10. IBUPROFEN [Concomitant]
  11. NAPROXEN [Concomitant]
  12. MISOPROSTOL [Concomitant]
  13. ASPIRIN [Concomitant]
  14. METOCARBAMOL [Concomitant]
  15. TRAZODONE HCL [Concomitant]
  16. LAMOTRIGINE [Concomitant]
  17. EFFEXOR [Concomitant]

REACTIONS (5)
  - ABSCESS LIMB [None]
  - CHOLELITHIASIS [None]
  - CONFUSIONAL STATE [None]
  - DELIRIUM [None]
  - PERIANAL ABSCESS [None]
